FAERS Safety Report 20562215 (Version 1)
Quarter: 2022Q1

REPORT INFORMATION
  Report Type: Spontaneous
  Country: US (occurrence: None)
  Receive Date: 20220304
  Receipt Date: 20220304
  Transmission Date: 20220424
  Serious: Yes (Other)
  Sender: FDA-Public Use
  Company Number: None

PATIENT
  Age: 75 Year
  Sex: Female
  Weight: 68.04 kg

DRUGS (8)
  1. OCTREOTIDE ACETATE [Suspect]
     Active Substance: OCTREOTIDE ACETATE
     Indication: Diarrhoea
     Dosage: OTHER STRENGTH : 50 UG/ML;?OTHER QUANTITY : 1 ML;?FREQUENCY : 3 TIMES A DAY;?OTHER ROUTE : 1 DOSE;?
     Route: 050
     Dates: start: 20211119, end: 20211119
  2. CYANOCOBALAMIN [Concomitant]
  3. SERTRALINE HYDROCHLORIDE [Concomitant]
     Active Substance: SERTRALINE HYDROCHLORIDE
  4. CARVEDILOL [Concomitant]
     Active Substance: CARVEDILOL
  5. PREVALITE [Concomitant]
     Active Substance: CHOLESTYRAMINE
  6. Calcium + D [Concomitant]
  7. CRANBERRY [Concomitant]
     Active Substance: CRANBERRY
  8. SODIUM BICARBONATE [Suspect]
     Active Substance: SODIUM BICARBONATE

REACTIONS (3)
  - Vomiting projectile [None]
  - Muscle spasms [None]
  - Obstruction [None]

NARRATIVE: CASE EVENT DATE: 20211119
